FAERS Safety Report 25961798 (Version 1)
Quarter: 2025Q4

REPORT INFORMATION
  Report Type: Other
  Country: EU (occurrence: EU)
  Receive Date: 20251027
  Receipt Date: 20251027
  Transmission Date: 20260119
  Serious: Yes (Hospitalization)
  Sender: ZYDUS PHARM
  Company Number: None

PATIENT

DRUGS (5)
  1. OLANZAPINE [Suspect]
     Active Substance: OLANZAPINE
     Indication: Poisoning deliberate
     Dosage: 1 TOTAL
     Route: 048
     Dates: start: 20250912, end: 20250912
  2. ACETAMINOPHEN [Suspect]
     Active Substance: ACETAMINOPHEN
     Indication: Poisoning deliberate
     Dosage: 23 GRAM 1 TOTAL
     Route: 048
     Dates: start: 20250912, end: 20250912
  3. SERTRALINE [Suspect]
     Active Substance: SERTRALINE HYDROCHLORIDE
     Indication: Poisoning deliberate
     Dosage: 1 TOTAL
     Route: 048
     Dates: start: 20250912, end: 20250912
  4. LOXAPINE [Suspect]
     Active Substance: LOXAPINE
     Indication: Poisoning deliberate
     Dosage: 1 TOTAL
     Route: 048
     Dates: start: 20250912, end: 20250912
  5. CYAMEMAZINE [Suspect]
     Active Substance: CYAMEMAZINE
     Indication: Poisoning deliberate
     Dosage: 52 MILLIGRAM 1 TOTAL
     Route: 048
     Dates: start: 20250912, end: 20250912

REACTIONS (3)
  - Hepatic cytolysis [Recovered/Resolved]
  - Somnolence [Recovered/Resolved]
  - Poisoning deliberate [Recovered/Resolved]

NARRATIVE: CASE EVENT DATE: 20250912
